FAERS Safety Report 6296060-6 (Version None)
Quarter: 2009Q3

REPORT INFORMATION
  Report Type: 
  Country: None (occurrence: None)
  Receive Date: 20090731
  Receipt Date: 20090715
  Transmission Date: 20100115
  Serious: Yes (Other)
  Sender: FDA-Public Use
  Company Number: 20090269

PATIENT
  Sex: Male

DRUGS (1)
  1. VENOFER [Suspect]
     Indication: IRON DEFICIENCY ANAEMIA
     Dosage: 200 MG, IN NSS OVER 45 MIN; INTRAVENOUS
     Route: 042
     Dates: start: 20090313

REACTIONS (3)
  - CATHETER SITE INFECTION [None]
  - JOINT SWELLING [None]
  - OEDEMA PERIPHERAL [None]
